FAERS Safety Report 8816601 (Version 1)
Quarter: 2012Q4

REPORT INFORMATION
  Report Type: Spontaneous
  Country: US (occurrence: None)
  Receive Date: 20121001
  Receipt Date: 20121001
  Transmission Date: 20130627
  Serious: Yes (Other)
  Sender: FDA-Public Use
  Company Number: None

PATIENT
  Age: 31 Year
  Sex: Female
  Weight: 54.89 kg

DRUGS (1)
  1. REMICADE [Suspect]
     Indication: RA
     Route: 041
     Dates: start: 20120927

REACTIONS (9)
  - Hot flush [None]
  - Deafness [None]
  - Hypoaesthesia [None]
  - Faecal incontinence [None]
  - Urticaria [None]
  - Infusion related reaction [None]
  - Diarrhoea [None]
  - Headache [None]
  - Wrong technique in drug usage process [None]
